FAERS Safety Report 9528439 (Version 1)
Quarter: 2013Q3

REPORT INFORMATION
  Report Type: Spontaneous
  Country: GB (occurrence: None)
  Receive Date: 20130913
  Receipt Date: 20130913
  Transmission Date: 20140515
  Serious: Yes (Disabling)
  Sender: FDA-Public Use
  Company Number: AXC-2013-000448

PATIENT
  Age: 30 Year
  Sex: Female

DRUGS (2)
  1. NITROGLYCERIN [Suspect]
     Indication: PRODUCT USED FOR UNKNOWN INDICATION
     Route: 061
     Dates: end: 201304
  2. MIRENA (LEVONOGESTREL) [Concomitant]

REACTIONS (3)
  - Panic reaction [None]
  - Irritability [None]
  - Restlessness [None]
